FAERS Safety Report 18397941 (Version 1)
Quarter: 2020Q4

REPORT INFORMATION
  Report Type: Other
  Country: DE (occurrence: DE)
  Receive Date: 20201019
  Receipt Date: 20201019
  Transmission Date: 20210114
  Serious: Yes (Hospitalization)
  Sender: FDA-Public Use
  Company Number: DE-STRIDES ARCOLAB LIMITED-2020SP012278

PATIENT
  Age: 17 Year
  Sex: Male
  Weight: 137 kg

DRUGS (2)
  1. ORFIRIL [Concomitant]
     Active Substance: VALPROATE SODIUM
     Indication: EPILEPSY
     Dosage: 150 MILLIGRAM
     Route: 048
  2. ETHOSUXIMIDE. [Suspect]
     Active Substance: ETHOSUXIMIDE
     Indication: EPILEPSY
     Dosage: 250 MILLIGRAM
     Route: 048
     Dates: start: 20190417, end: 20190506

REACTIONS (6)
  - Sleep disorder [Unknown]
  - Abdominal pain [Unknown]
  - Fluid intake reduced [Unknown]
  - Weight decreased [Unknown]
  - Hypophagia [Unknown]
  - Dizziness [Unknown]

NARRATIVE: CASE EVENT DATE: 20190501
